FAERS Safety Report 17129412 (Version 1)
Quarter: 2019Q4

REPORT INFORMATION
  Report Type: Spontaneous
  Country: US (occurrence: US)
  Receive Date: 20191209
  Receipt Date: 20191209
  Transmission Date: 20200122
  Serious: No
  Sender: FDA-Public Use
  Company Number: US-PFIZER INC-2019527307

PATIENT
  Age: 42 Year
  Sex: Female

DRUGS (1)
  1. XELJANZ XR [Suspect]
     Active Substance: TOFACITINIB CITRATE
     Dosage: 11 MG, DAILY(1 TABLET ORAL; EVERY DAY)
     Route: 048
     Dates: start: 20190508, end: 2019

REACTIONS (1)
  - Respiratory tract infection viral [Unknown]

NARRATIVE: CASE EVENT DATE: 2019
